FAERS Safety Report 5564780-4 (Version None)
Quarter: 2007Q4

REPORT INFORMATION
  Report Type: 
  Country: None (occurrence: None)
  Receive Date: 20071218
  Receipt Date: 20071211
  Transmission Date: 20080405
  Serious: Yes (Hospitalization)
  Sender: FDA-Public Use
  Company Number: US-ROCHE-532546

PATIENT
  Age: 42 Year
  Sex: Male

DRUGS (20)
  1. CELLCEPT [Suspect]
     Indication: IMMUNOSUPPRESSION
     Route: 065
  2. GANCICLOVIR [Suspect]
     Indication: CYTOMEGALOVIRUS INFECTION
     Route: 065
     Dates: start: 20070401
  3. PROCRIT [Suspect]
     Route: 058
     Dates: start: 20061201
  4. PROCRIT [Suspect]
     Dosage: INCREASED DOSE
     Route: 058
     Dates: end: 20071012
  5. DAPSONE [Suspect]
     Indication: ANTIBIOTIC PROPHYLAXIS
     Route: 065
  6. CIPROFLOXACIN HYDROCHLORIDE [Suspect]
     Indication: ANTIBIOTIC PROPHYLAXIS
     Route: 065
  7. PROGRAF [Suspect]
     Indication: IMMUNOSUPPRESSION
     Route: 065
  8. LANTUS [Concomitant]
     Route: 058
  9. PHOSLO [Concomitant]
     Route: 048
  10. NORVASC [Concomitant]
     Route: 048
  11. CLONIDINE [Concomitant]
     Route: 062
  12. METOPROLOL [Concomitant]
     Route: 048
  13. PROTONIX [Concomitant]
  14. IRON SULFATETHIAMIN COMPOUND TAB [Concomitant]
     Route: 048
  15. AMBIEN [Concomitant]
     Route: 048
  16. FOLIC ACID [Concomitant]
     Route: 048
  17. NOVOLIN 50/50 [Concomitant]
  18. NEPHRO-VITE [Concomitant]
  19. ERGOCALCIFEROL [Concomitant]
  20. NEUPOGEN [Concomitant]
     Indication: NEUTROPENIA

REACTIONS (2)
  - APLASIA PURE RED CELL [None]
  - NEUTROPENIA [None]
